FAERS Safety Report 8333348-9 (Version None)
Quarter: 2012Q2

REPORT INFORMATION
  Report Type: 
  Country: None (occurrence: None)
  Receive Date: 20120503
  Receipt Date: 20120426
  Transmission Date: 20120825
  Serious: Yes (Other)
  Sender: FDA-Public Use
  Company Number: US-PFIZER INC-2012078207

PATIENT
  Age: 38 Year
  Sex: Female

DRUGS (1)
  1. PRISTIQ [Suspect]
     Dosage: 100 MG, 1 PO DAILY
     Route: 048

REACTIONS (1)
  - DEPRESSION [None]
